FAERS Safety Report 5836040-5 (Version None)
Quarter: 2008Q3

REPORT INFORMATION
  Report Type: 
  Country: None (occurrence: None)
  Receive Date: 20080806
  Receipt Date: 20080729
  Transmission Date: 20090109
  Serious: Yes (Hospitalization, Other)
  Sender: FDA-Public Use
  Company Number: US-PFIZER INC-2008063710

PATIENT
  Sex: Female
  Weight: 90.9 kg

DRUGS (4)
  1. LYRICA [Suspect]
     Indication: FIBROMYALGIA
     Route: 048
     Dates: start: 20080601, end: 20080629
  2. CHONDROITIN/GLUCOSAMINE [Concomitant]
     Indication: ARTHRITIS
     Route: 048
  3. LORTAB [Concomitant]
     Route: 048
  4. SOMA [Concomitant]
     Route: 048

REACTIONS (7)
  - ASTHENIA [None]
  - CARDIAC FAILURE CONGESTIVE [None]
  - FEAR OF DEATH [None]
  - MALAISE [None]
  - PERICARDIAL EFFUSION [None]
  - PNEUMONIA [None]
  - PULMONARY OEDEMA [None]
